FAERS Safety Report 23724604 (Version 1)
Quarter: 2024Q2

REPORT INFORMATION
  Report Type: Spontaneous
  Country: US (occurrence: US)
  Receive Date: 20240409
  Receipt Date: 20240409
  Transmission Date: 20240715
  Serious: No
  Sender: FDA-Public Use
  Company Number: US-FOUNDATIONCONSUMERHC-2023-US-038382

PATIENT
  Sex: Female

DRUGS (1)
  1. PLAN B ONE-STEP [Suspect]
     Active Substance: LEVONORGESTREL
     Indication: Post coital contraception
     Dosage: 1 TABLET ON APPROXIMATELY 17-OCT-2023, AND 1 TABLET AN UNSPECIFIED NUMBER OF TIMES PREVIOUSLY
     Route: 048
     Dates: end: 20231017

REACTIONS (2)
  - Menstruation delayed [Not Recovered/Not Resolved]
  - Menstruation irregular [Recovered/Resolved]

NARRATIVE: CASE EVENT DATE: 20231103
